FAERS Safety Report 25329015 (Version 1)
Quarter: 2025Q2

REPORT INFORMATION
  Report Type: Report from Study
  Country: US (occurrence: US)
  Receive Date: 20250519
  Receipt Date: 20250519
  Transmission Date: 20250717
  Serious: Yes (Life-Threatening)
  Sender: ARDELYX
  Company Number: US-ARDELYX-2025ARDX000573

PATIENT
  Age: 78 Year
  Sex: Male

DRUGS (1)
  1. XPHOZAH [Suspect]
     Active Substance: TENAPANOR HYDROCHLORIDE
     Indication: Chronic kidney disease
     Route: 048
     Dates: start: 202412

REACTIONS (2)
  - Accident [Unknown]
  - Head injury [Unknown]
